FAERS Safety Report 16027911 (Version 2)
Quarter: 2019Q1

REPORT INFORMATION
  Report Type: Spontaneous
  Country: ES (occurrence: ES)
  Receive Date: 20190304
  Receipt Date: 20190326
  Transmission Date: 20190418
  Serious: Yes (Other)
  Sender: FDA-Public Use
  Company Number: ES-B.I. PHARMACEUTICALS,INC./RIDGEFIELD-2019-BI-008794

PATIENT

DRUGS (1)
  1. ATROVENT [Suspect]
     Active Substance: IPRATROPIUM BROMIDE
     Indication: PRODUCT USED FOR UNKNOWN INDICATION
     Dosage: STRENGTH: UDV 500 MCG/2ML
     Route: 065

REACTIONS (4)
  - Respiratory failure [Unknown]
  - Product quality issue [Unknown]
  - Dyspnoea [Unknown]
  - Chest pain [Unknown]
